FAERS Safety Report 9080150 (Version 2)
Quarter: 2013Q1

REPORT INFORMATION
  Report Type: Spontaneous
  Country: ZA (occurrence: ZA)
  Receive Date: 20130218
  Receipt Date: 20130226
  Transmission Date: 20140127
  Serious: Yes (Death)
  Sender: FDA-Public Use
  Company Number: PHHY2013ZA015575

PATIENT
  Sex: 0

DRUGS (1)
  1. FLUZOL [Suspect]

REACTIONS (1)
  - Death [Fatal]
